FAERS Safety Report 5587621-8 (Version None)
Quarter: 2008Q1

REPORT INFORMATION
  Report Type: 
  Country: None (occurrence: None)
  Receive Date: 20080110
  Receipt Date: 20071231
  Transmission Date: 20080703
  Serious: Yes (Death)
  Sender: FDA-Public Use
  Company Number: US-MERCK-0801USA00180

PATIENT
  Age: 79 Year
  Sex: Female

DRUGS (1)
  1. TIAMATE [Suspect]
     Route: 048

REACTIONS (3)
  - DRUG TOXICITY [None]
  - MEDICATION ERROR [None]
  - OVERDOSE [None]
